FAERS Safety Report 9986224 (Version 1)
Quarter: 2014Q1

REPORT INFORMATION
  Report Type: Spontaneous
  Country: PR (occurrence: PR)
  Receive Date: 20140307
  Receipt Date: 20140307
  Transmission Date: 20141002
  Serious: No
  Sender: FDA-Public Use
  Company Number: PR-ABBVIE-13P-131-1083403-00

PATIENT
  Sex: Female
  Weight: 89.44 kg

DRUGS (10)
  1. HUMIRA [Suspect]
     Indication: PSORIATIC ARTHROPATHY
     Route: 058
     Dates: start: 2004, end: 20130416
  2. METHOTREXATE [Concomitant]
     Indication: ARTHRITIS
     Route: 058
  3. AZULFIDINE [Concomitant]
     Indication: ARTHRITIS
     Route: 048
  4. PREDNISONE [Concomitant]
     Indication: ARTHRITIS
     Route: 048
  5. FOLIC ACID [Concomitant]
     Indication: ARTHRITIS
     Route: 048
  6. HYZAAR [Concomitant]
     Indication: HYPERTENSION
     Route: 048
  7. CRESTROR [Concomitant]
     Indication: BLOOD CHOLESTEROL
     Route: 048
  8. ZOLOFT [Concomitant]
     Indication: DEPRESSION
     Route: 048
  9. KLONOPIN [Concomitant]
     Indication: DEPRESSION
     Route: 048
  10. DESIREL [Concomitant]
     Indication: INSOMNIA
     Route: 048

REACTIONS (1)
  - Surgery [Unknown]
